FAERS Safety Report 16292835 (Version 12)
Quarter: 2020Q4

REPORT INFORMATION
  Report Type: Report from Study
  Country: KR (occurrence: KR)
  Receive Date: 20190509
  Receipt Date: 20201209
  Transmission Date: 20210113
  Serious: Yes (Hospitalization)
  Sender: FDA-Public Use
  Company Number: KR-EISAI MEDICAL RESEARCH-EC-2019-056096

PATIENT
  Age: 78 Year
  Sex: Male
  Weight: 66.9 kg

DRUGS (9)
  1. LENVATINIB [Suspect]
     Active Substance: LENVATINIB
     Indication: HEPATOCELLULAR CARCINOMA
     Route: 048
     Dates: start: 20190425, end: 20190430
  2. BETMIGA [Concomitant]
     Active Substance: MIRABEGRON
     Dates: start: 201401
  3. HARNAL [Concomitant]
     Active Substance: TAMSULOSIN HYDROCHLORIDE
     Dates: start: 201401
  4. LENVATINIB [Suspect]
     Active Substance: LENVATINIB
     Dosage: STARTING DOSE AT 8 MG, QD, FLUCTUATED DOSE
     Route: 048
     Dates: start: 20190516
  5. PEMBROLIZUMAB. [Suspect]
     Active Substance: PEMBROLIZUMAB
     Indication: HEPATOCELLULAR CARCINOMA
     Route: 041
     Dates: start: 20190425, end: 20190425
  6. BEECOM [Concomitant]
  7. NORVASC [Concomitant]
     Active Substance: AMLODIPINE BESYLATE
     Dates: start: 201401
  8. GASMOTIN [Concomitant]
     Active Substance: MOSAPRIDE CITRATE
     Dates: start: 20190406
  9. PEMBROLIZUMAB. [Suspect]
     Active Substance: PEMBROLIZUMAB
     Route: 041
     Dates: start: 20190516, end: 20200806

REACTIONS (1)
  - Tumour haemorrhage [Recovered/Resolved with Sequelae]

NARRATIVE: CASE EVENT DATE: 20190430
